FAERS Safety Report 4833467-5 (Version None)
Quarter: 2005Q4

REPORT INFORMATION
  Report Type: 
  Country: None (occurrence: None)
  Receive Date: 20051118
  Receipt Date: 20051026
  Transmission Date: 20060501
  Serious: Yes (Death, Hospitalization, Other)
  Sender: FDA-Public Use
  Company Number: JP_051108041

PATIENT
  Age: 68 Year
  Sex: Male
  Weight: 55 kg

DRUGS (3)
  1. GEMZAR [Suspect]
     Indication: METASTASES TO LUNG
     Dosage: 1600 MG OTHER
     Route: 050
     Dates: start: 20020726, end: 20020808
  2. FLUOROURACIL [Concomitant]
  3. LEUCOVORINE (CALCIUM FOLINATE) [Concomitant]

REACTIONS (19)
  - ANTINUCLEAR ANTIBODY POSITIVE [None]
  - BILE DUCT STENOSIS [None]
  - BILIARY DILATATION [None]
  - BILIARY TRACT DISORDER [None]
  - BLOOD AMYLASE INCREASED [None]
  - BLOOD ELASTASE INCREASED [None]
  - CHOLANGITIS SCLEROSING [None]
  - CHOLESTASIS [None]
  - GALLBLADDER DISORDER [None]
  - HEPATIC FAILURE [None]
  - OEDEMA MUCOSAL [None]
  - PANCREATIC DISORDER [None]
  - PANCREATIC DUCT DILATATION [None]
  - PANCREATIC DUCT OBSTRUCTION [None]
  - PANCREATITIS ACUTE [None]
  - PLEURAL EFFUSION [None]
  - PNEUMONIA BACTERIAL [None]
  - PNEUMONITIS [None]
  - THERAPEUTIC RESPONSE DECREASED [None]
